FAERS Safety Report 20848979 (Version 6)
Quarter: 2023Q4

REPORT INFORMATION
  Report Type: Other
  Country: US (occurrence: None)
  Receive Date: 20220519
  Receipt Date: 20231003
  Transmission Date: 20240110
  Serious: Yes (Other)
  Sender: FDA-Public Use
  Company Number: US-ROCHE-3098250

PATIENT
  Age: 66 Year
  Sex: Female
  Weight: 30.418 kg

DRUGS (3)
  1. ERIVEDGE [Suspect]
     Active Substance: VISMODEGIB
     Indication: Basal cell carcinoma
     Dosage: TAKE 1 CAPSULE BY MOUTH EVERY DAY
     Route: 048
     Dates: start: 20201016
  2. ERIVEDGE [Suspect]
     Active Substance: VISMODEGIB
     Indication: Basal cell carcinoma
  3. ERIVEDGE [Suspect]
     Active Substance: VISMODEGIB
     Indication: Neoplasm malignant

REACTIONS (6)
  - Recurrent cancer [Unknown]
  - Metastatic neoplasm [Unknown]
  - Deafness [Not Recovered/Not Resolved]
  - Blindness [Unknown]
  - Weight decreased [Unknown]
  - Malaise [Unknown]
